FAERS Safety Report 5972231-0 (Version None)
Quarter: 2008Q4

REPORT INFORMATION
  Report Type: 
  Country: None (occurrence: None)
  Receive Date: 20081201
  Receipt Date: 20071116
  Transmission Date: 20090506
  Serious: No
  Sender: FDA-Public Use
  Company Number: US-TEVA-165001USA

PATIENT
  Sex: Female

DRUGS (5)
  1. SALBUTAMOL SULFATE INHALATION, 0.09 MG [Suspect]
     Dates: start: 20070501
  2. MONTELUKAST SODIUM [Concomitant]
  3. FLUTICASONE PROPIONATE [Concomitant]
  4. BIRTH CONTROL PILL [Concomitant]
  5. ADERALL [Concomitant]

REACTIONS (1)
  - DYSPHONIA [None]
